FAERS Safety Report 21823770 (Version 1)
Quarter: 2023Q1

REPORT INFORMATION
  Report Type: Spontaneous
  Country: US (occurrence: None)
  Receive Date: 20230104
  Receipt Date: 20230104
  Transmission Date: 20230418
  Serious: Yes (Other)
  Sender: FDA-Public Use
  Company Number: None

PATIENT
  Age: 75 Year
  Sex: Female
  Weight: 94.5 kg

DRUGS (1)
  1. MULTIHANCE [Suspect]
     Active Substance: GADOBENATE DIMEGLUMINE
     Dosage: OTHER FREQUENCY : BOLUS INJECTION;?
     Route: 040

REACTIONS (5)
  - Urticaria [None]
  - Pain [None]
  - Burning sensation [None]
  - Presyncope [None]
  - Adverse drug reaction [None]

NARRATIVE: CASE EVENT DATE: 20230104
